FAERS Safety Report 19653763 (Version 2)
Quarter: 2021Q3

REPORT INFORMATION
  Report Type: Spontaneous
  Country: DE (occurrence: TW)
  Receive Date: 20210803
  Receipt Date: 20210813
  Transmission Date: 20211014
  Serious: Yes (Other)
  Sender: FDA-Public Use
  Company Number: TW-ASTELLAS-2021US028144

PATIENT
  Age: 5 Decade
  Sex: Female

DRUGS (2)
  1. ISAVUCONAZOLE [Suspect]
     Active Substance: ISAVUCONAZOLE
     Indication: PRODUCT USED FOR UNKNOWN INDICATION
     Dosage: 2 DOSAGE FORM, TWICE DAILY (2 IN 1 D)
     Route: 048
  2. ISAVUCONAZOLE [Suspect]
     Active Substance: ISAVUCONAZOLE
     Dosage: 1 DOSAGE FORM, TWICE DAILY (2 IN 1 D)
     Route: 048

REACTIONS (2)
  - Off label use [Unknown]
  - Eye movement disorder [Unknown]
